FAERS Safety Report 23974326 (Version 1)
Quarter: 2024Q2

REPORT INFORMATION
  Report Type: Report from Study
  Country: ES (occurrence: ES)
  Receive Date: 20240614
  Receipt Date: 20240614
  Transmission Date: 20240716
  Serious: Yes (Hospitalization)
  Sender: FDA-Public Use
  Company Number: None

PATIENT
  Age: 62 Year
  Sex: Male

DRUGS (3)
  1. ATROPINE SULFATE [Suspect]
     Active Substance: ATROPINE SULFATE
     Indication: Erectile dysfunction
     Dates: start: 20221227
  2. CHLORPROMAZINE [Suspect]
     Active Substance: CHLORPROMAZINE
     Indication: Erectile dysfunction
     Dates: start: 20221227
  3. PAPAVERINE [Suspect]
     Active Substance: PAPAVERINE
     Indication: Erectile dysfunction
     Dates: start: 20221227

REACTIONS (1)
  - Priapism [Recovering/Resolving]

NARRATIVE: CASE EVENT DATE: 20221227
